FAERS Safety Report 23631957 (Version 1)
Quarter: 2024Q1

REPORT INFORMATION
  Report Type: Spontaneous
  Country: US (occurrence: None)
  Receive Date: 20240313
  Receipt Date: 20240313
  Transmission Date: 20240410
  Serious: Yes (Hospitalization, Other)
  Sender: FDA-Public Use
  Company Number: None

PATIENT
  Age: 66 Year
  Sex: Male
  Weight: 110.25 kg

DRUGS (1)
  1. REYVOW [Suspect]
     Active Substance: LASMIDITAN
     Indication: Migraine
     Dosage: OTHER QUANTITY : 1 TABLET(S);?FREQUENCY : DAILY;?
     Route: 048
     Dates: start: 20240302, end: 20240302

REACTIONS (7)
  - Aphasia [None]
  - Hemianopia [None]
  - Hallucination, visual [None]
  - Memory impairment [None]
  - Visual impairment [None]
  - Migraine [None]
  - Cognitive disorder [None]

NARRATIVE: CASE EVENT DATE: 20240302
